FAERS Safety Report 4556832-2 (Version None)
Quarter: 2005Q1

REPORT INFORMATION
  Report Type: 
  Country: None (occurrence: None)
  Receive Date: 20050118
  Receipt Date: 20050104
  Transmission Date: 20050727
  Serious: Yes (Hospitalization)
  Sender: FDA-Public Use
  Company Number: 2005-00033

PATIENT
  Age: 53 Year
  Sex: Male

DRUGS (4)
  1. FLUOXETINE (WATSON LABORATORIES)(FLUOXETINE) CAPSULE [Suspect]
     Indication: DEPRESSION
     Dosage: ORAL
     Route: 048
  2. TRAMADOL HCL [Suspect]
     Dosage: ORAL
     Route: 048
  3. TRAZODONE HCL [Suspect]
     Indication: DEPRESSION
     Dosage: ORAL
     Route: 048
  4. CLONAZEPAM [Concomitant]

REACTIONS (2)
  - DRUG INTERACTION POTENTIATION [None]
  - SEROTONIN SYNDROME [None]
